FAERS Safety Report 9508598 (Version 1)
Quarter: 2013Q1

REPORT INFORMATION
  Report Type: Spontaneous
  Country: US (occurrence: None)
  Receive Date: 20130305
  Receipt Date: 20130305
  Transmission Date: 20140127
  Serious: Yes (Other)
  Sender: FDA-Public Use
  Company Number: 163-21880-12081523

PATIENT
  Age: 69 Year
  Sex: Male
  Weight: 83.92 kg

DRUGS (5)
  1. REVLIMID [Suspect]
     Indication: PLASMA CELL MYELOMA
     Route: 048
     Dates: start: 20060206
  2. COUMADIN ( WARFARIN SODIUM) ( UNKNOWN) [Concomitant]
  3. DECADRON ( DEXAMETHASONE) ( UNKNOWN) [Concomitant]
  4. FIBER ( POLYCARBOPHIL CALCIUM) ( UNKNOWN) [Concomitant]
  5. MULTIVITAMINS ( MULTIVITAMINS) ( UNKNOWN) [Concomitant]

REACTIONS (1)
  - Skin lesion [None]
